FAERS Safety Report 5042440-6 (Version None)
Quarter: 2006Q3

REPORT INFORMATION
  Report Type: 
  Country: None (occurrence: None)
  Receive Date: 20060705
  Receipt Date: 20060620
  Transmission Date: 20061208
  Serious: Yes (Hospitalization)
  Sender: FDA-Public Use
  Company Number: SEWYE754520JUN06

PATIENT
  Sex: Female

DRUGS (3)
  1. ENBREL [Suspect]
     Indication: DRUG USE FOR UNKNOWN INDICATION
     Route: 051
     Dates: start: 20040901, end: 20060401
  2. NORVASC [Concomitant]
     Indication: HYPERTENSION
     Route: 048
  3. COAPROVEL [Concomitant]
     Indication: HYPERTENSION
     Dosage: ONE TABLET (300/ 12,5) PER DAY
     Route: 048

REACTIONS (4)
  - BREAST CANCER STAGE II [None]
  - HEPATIC ENZYME ABNORMAL [None]
  - HEPATIC ENZYME INCREASED [None]
  - WEIGHT INCREASED [None]
